FAERS Safety Report 20469184 (Version 1)
Quarter: 2022Q1

REPORT INFORMATION
  Report Type: Report from Study
  Country: US (occurrence: US)
  Receive Date: 20220214
  Receipt Date: 20220214
  Transmission Date: 20220423
  Serious: No
  Sender: FDA-Public Use
  Company Number: US-HRARD-2021000819

PATIENT
  Sex: Male

DRUGS (1)
  1. LYSODREN [Suspect]
     Active Substance: MITOTANE
     Dosage: 2000 MG BID
     Route: 048
     Dates: start: 20210324

REACTIONS (3)
  - Nausea [Not Recovered/Not Resolved]
  - Fatigue [Not Recovered/Not Resolved]
  - Off label use [Not Recovered/Not Resolved]

NARRATIVE: CASE EVENT DATE: 20210101
